FAERS Safety Report 9230412 (Version 1)
Quarter: 2013Q2

REPORT INFORMATION
  Report Type: Spontaneous
  Country: BG (occurrence: BG)
  Receive Date: 20130415
  Receipt Date: 20130415
  Transmission Date: 20140414
  Serious: Yes (Hospitalization)
  Sender: FDA-Public Use
  Company Number: BG-ASTRAZENECA-2013SE22358

PATIENT
  Age: 75 Year
  Sex: Male

DRUGS (6)
  1. BETALOC ZOK [Suspect]
     Indication: HEART RATE INCREASED
     Route: 048
     Dates: start: 2012
  2. BETALOC ZOK [Suspect]
     Indication: HYPERTENSION
     Route: 048
     Dates: start: 2012
  3. SINTROM [Concomitant]
     Indication: VASCULAR GRAFT
     Route: 048
     Dates: start: 2009
  4. SINTROM [Concomitant]
     Indication: AORTIC VALVE REPLACEMENT
     Route: 048
     Dates: start: 2009
  5. VIAGRA [Concomitant]
     Route: 048
  6. GINKOPRIM [Concomitant]
     Route: 048

REACTIONS (1)
  - Atrial fibrillation [Unknown]
